FAERS Safety Report 8338796-9 (Version None)
Quarter: 2012Q2

REPORT INFORMATION
  Report Type: 
  Country: None (occurrence: None)
  Receive Date: 20120504
  Receipt Date: 20120425
  Transmission Date: 20120825
  Serious: Yes (Hospitalization)
  Sender: FDA-Public Use
  Company Number: US-ROCHE-1053576

PATIENT
  Sex: Female

DRUGS (16)
  1. OMALIZUMAB [Suspect]
     Indication: ASTHMA
     Route: 058
     Dates: start: 20100628
  2. OMALIZUMAB [Suspect]
     Dosage: FIRST TRIMESTER
     Route: 058
     Dates: start: 20110910
  3. XOPENEX [Concomitant]
     Dosage: DRUG NAME: XOPENEX NEBULIZER
  4. OMALIZUMAB [Suspect]
     Dosage: SECOND TRIMESTER
     Route: 058
     Dates: start: 20120130
  5. VITAMIN AND MINERAL PRENATAL SUPPLEMENT W/ FOLIC ACID CAP [Concomitant]
     Indication: PREGNANCY
  6. VICODIN [Concomitant]
     Indication: MUSCLE STRAIN
  7. OMALIZUMAB [Suspect]
     Dosage: 8 WEEKS PRIOR TO CONCEPTION
     Route: 058
     Dates: start: 20110813
  8. OMALIZUMAB [Suspect]
     Dosage: SECOND TRIMESTER
     Route: 058
     Dates: start: 20120303
  9. IMMUNOTHERAPY UNKNOWN ALLERGEN INJECTION [Concomitant]
     Indication: HYPERSENSITIVITY
     Dosage: DRUG NAME: IMMUNOTHERAPY
  10. XOPENEX [Concomitant]
     Indication: ASTHMA
     Dosage: DRUG NAME: XOPENEX INHALER
  11. OMALIZUMAB [Suspect]
     Dosage: FIRST TRIMESTER
     Route: 058
     Dates: start: 20111117
  12. OMALIZUMAB [Suspect]
     Dosage: SECOND TRIMESTER
     Route: 058
     Dates: start: 20111222
  13. SYMBICORT [Concomitant]
     Indication: ASTHMA
  14. ZYRTEC [Concomitant]
     Indication: HYPERSENSITIVITY
  15. SINGULAIR [Concomitant]
     Indication: ASTHMA
  16. TYLENOL (CAPLET) [Concomitant]
     Indication: HEADACHE

REACTIONS (2)
  - GESTATIONAL HYPERTENSION [None]
  - PREGNANCY [None]
